FAERS Safety Report 6539071-5 (Version None)
Quarter: 2010Q1

REPORT INFORMATION
  Report Type: 
  Country: None (occurrence: None)
  Receive Date: 20100115
  Receipt Date: 20100107
  Transmission Date: 20100710
  Serious: Yes (Hospitalization)
  Sender: FDA-Public Use
  Company Number: PHHY2010BR01013

PATIENT
  Age: 20 Year
  Sex: Male

DRUGS (4)
  1. ZELMAC [Suspect]
     Dosage: TWICE A DAY
     Route: 048
  2. NEXIUM [Concomitant]
  3. MOTILIUM [Concomitant]
  4. PENTASA [Concomitant]

REACTIONS (3)
  - CONSTIPATION [None]
  - INTESTINAL FUNCTIONAL DISORDER [None]
  - MALAISE [None]
